FAERS Safety Report 24572892 (Version 1)
Quarter: 2024Q4

REPORT INFORMATION
  Report Type: Spontaneous
  Country: US (occurrence: US)
  Receive Date: 20241101
  Receipt Date: 20241101
  Transmission Date: 20250115
  Serious: No
  Sender: Tarsus Pharmaceuticals
  Company Number: US-TARSUS PHARMACEUTICALS-TSP-US-2024-000389

PATIENT
  Age: 50 Year
  Sex: Male

DRUGS (2)
  1. XDEMVY [Suspect]
     Active Substance: LOTILANER
     Indication: Demodex blepharitis
     Dosage: 1 DROP, BID IN BOTH EYES
     Route: 047
     Dates: start: 202407, end: 2024
  2. XDEMVY [Suspect]
     Active Substance: LOTILANER
     Dosage: 1 DROP, QD IN BOTH EYES
     Route: 047
     Dates: end: 202407

REACTIONS (1)
  - Ocular hyperaemia [Recovered/Resolved]

NARRATIVE: CASE EVENT DATE: 20240701
